FAERS Safety Report 13167214 (Version 1)
Quarter: 2017Q1

REPORT INFORMATION
  Report Type: Spontaneous
  Country: US (occurrence: US)
  Receive Date: 20170123
  Receipt Date: 20170123
  Transmission Date: 20170428
  Serious: Yes (Hospitalization)
  Sender: FDA-Public Use
  Company Number: None

PATIENT
  Age: 59 Year
  Sex: Female
  Weight: 73.55 kg

DRUGS (3)
  1. IRBESARTAN. [Concomitant]
     Active Substance: IRBESARTAN
  2. XARELTO [Suspect]
     Active Substance: RIVAROXABAN
     Indication: THROMBOSIS
     Route: 048
     Dates: start: 20160516, end: 20160620
  3. VITAMIN D3 [Concomitant]
     Active Substance: CHOLECALCIFEROL

REACTIONS (9)
  - Palpitations [None]
  - Skin exfoliation [None]
  - Therapy non-responder [None]
  - Constipation [None]
  - Decreased appetite [None]
  - Chest discomfort [None]
  - Dyspnoea [None]
  - Erythema [None]
  - Chills [None]

NARRATIVE: CASE EVENT DATE: 20160612
